FAERS Safety Report 4412924-X (Version None)
Quarter: 2004Q3

REPORT INFORMATION
  Report Type: 
  Country: None (occurrence: None)
  Receive Date: 20040730
  Receipt Date: 20040730
  Transmission Date: 20050211
  Serious: Yes (Hospitalization)
  Sender: FDA-Public Use
  Company Number: None

PATIENT
  Age: 37 Year
  Sex: Female
  Weight: 71.4 kg

DRUGS (2)
  1. GEODON [Suspect]
     Indication: ANXIETY
     Dosage: 40 MG AM , 120 PM [ 2 WEEKS (DOSE INCREASE 2-3 DAYS AGO)]
  2. GEODON [Suspect]
     Indication: PSYCHOMOTOR HYPERACTIVITY
     Dosage: 40 MG AM , 120 PM [ 2 WEEKS (DOSE INCREASE 2-3 DAYS AGO)]

REACTIONS (2)
  - COMA [None]
  - NEUROLEPTIC MALIGNANT SYNDROME [None]
